FAERS Safety Report 6097732-9 (Version None)
Quarter: 2009Q1

REPORT INFORMATION
  Report Type: 
  Country: None (occurrence: None)
  Receive Date: 20090227
  Receipt Date: 20090224
  Transmission Date: 20090719
  Serious: Yes (Other)
  Sender: FDA-Public Use
  Company Number: US-MERCK-0902USA02717

PATIENT
  Age: 72 Year
  Sex: Female

DRUGS (1)
  1. SINGULAIR [Suspect]
     Indication: HYPERSENSITIVITY
     Route: 048
     Dates: start: 20081201, end: 20080101

REACTIONS (4)
  - ASTHENIA [None]
  - DEPRESSION [None]
  - SUICIDAL IDEATION [None]
  - TREMOR [None]
